FAERS Safety Report 13610958 (Version 1)
Quarter: 2017Q2

REPORT INFORMATION
  Report Type: Spontaneous
  Country: US (occurrence: US)
  Receive Date: 20170605
  Receipt Date: 20170605
  Transmission Date: 20170830
  Serious: Yes (Other)
  Sender: FDA-Public Use
  Company Number: None

PATIENT
  Age: 71 Year
  Sex: Female
  Weight: 87.09 kg

DRUGS (15)
  1. TIMOLOL. [Concomitant]
     Active Substance: TIMOLOL
  2. ASA [Concomitant]
     Active Substance: ASPIRIN
  3. LORATADINE. [Concomitant]
     Active Substance: LORATADINE
  4. CALCIUM WITH D3 [Concomitant]
  5. CARAFATE [Concomitant]
     Active Substance: SUCRALFATE
  6. DOCUSATE [Concomitant]
     Active Substance: DOCUSATE
  7. IMITREX [Concomitant]
     Active Substance: SUMATRIPTAN SUCCINATE
  8. LOPID [Concomitant]
     Active Substance: GEMFIBROZIL
  9. BISOPROLOL [Concomitant]
     Active Substance: BISOPROLOL
  10. TOPIRAMATE. [Concomitant]
     Active Substance: TOPIRAMATE
  11. MAG 64 [Concomitant]
  12. TOPIRAMATE. [Suspect]
     Active Substance: TOPIRAMATE
     Indication: MIGRAINE PROPHYLAXIS
     Dosage: ?          QUANTITY:43%CH;?
     Route: 048
     Dates: end: 20170405
  13. MVI [Concomitant]
     Active Substance: VITAMINS
  14. TOPIRAMATE. [Suspect]
     Active Substance: TOPIRAMATE
     Dates: start: 20170517
  15. COQ10 [Concomitant]
     Active Substance: UBIDECARENONE

REACTIONS (1)
  - Nephrolithiasis [None]

NARRATIVE: CASE EVENT DATE: 20150920
